FAERS Safety Report 7333655-2 (Version None)
Quarter: 2011Q1

REPORT INFORMATION
  Report Type: 
  Country: None (occurrence: None)
  Receive Date: 20110306
  Receipt Date: 20110223
  Transmission Date: 20110831
  Serious: Yes (Other)
  Sender: FDA-Public Use
  Company Number: US-ELI_LILLY_AND_COMPANY-US201102007034

PATIENT
  Sex: Female

DRUGS (1)
  1. EVISTA [Suspect]
     Indication: OSTEOPOROSIS
     Dosage: 60 MG, DAILY (1/D)

REACTIONS (9)
  - TREMOR [None]
  - PAIN IN EXTREMITY [None]
  - PARAESTHESIA [None]
  - BONE PAIN [None]
  - DRUG DOSE OMISSION [None]
  - MALAISE [None]
  - JOINT SWELLING [None]
  - OEDEMA PERIPHERAL [None]
  - FEELING HOT [None]
